FAERS Safety Report 8900667 (Version 2)
Quarter: 2012Q4

REPORT INFORMATION
  Report Type: 
  Country: US (occurrence: US)
  Receive Date: 20121109
  Receipt Date: 20121203
  Transmission Date: 20130627
  Serious: Yes (Other)
  Sender: FDA-Public Use
  Company Number: US-PFIZER INC-2012279771

PATIENT
  Age: 35 Year
  Sex: Male
  Weight: 70.3 kg

DRUGS (7)
  1. NEURONTIN [Suspect]
     Indication: SEIZURES
     Dosage: (1600mg in morning + 2000mg in evening), 2x/day
     Route: 048
     Dates: end: 20121104
  2. NEURONTIN [Suspect]
     Dosage: 400 mg 5 caps in am and 4 caps pm
     Route: 048
     Dates: start: 20080529, end: 20121109
  3. TRILEPTAL [Suspect]
     Indication: CONVULSIVE DISORDER
     Dosage: 300 mg, Take 4 tablets twice daily
     Route: 048
     Dates: start: 20080529, end: 20121109
  4. BENZAMYCIN [Concomitant]
     Dosage: 47 g, 2x/day
     Dates: start: 20080529
  5. AMBIEN [Concomitant]
     Dosage: 10 mg, 1 tablet at bedtime
     Route: 048
     Dates: start: 20080529, end: 20121109
  6. DIPHENHYDRAMINE [Concomitant]
     Dosage: 50 mg, UNK
  7. PROPECIA [Concomitant]
     Dosage: 1 mg, 1 tablet daily
     Route: 048
     Dates: start: 20080529, end: 20121109

REACTIONS (2)
  - Seizure cluster [Unknown]
  - Withdrawal syndrome [Not Recovered/Not Resolved]
